FAERS Safety Report 9780909 (Version 3)
Quarter: 2014Q2

REPORT INFORMATION
  Report Type: Spontaneous
  Country: CN (occurrence: CN)
  Receive Date: 20131224
  Receipt Date: 20140514
  Transmission Date: 20141212
  Serious: Yes (Death, Other)
  Sender: FDA-Public Use
  Company Number: PHHY2013CN141813

PATIENT
  Sex: Male

DRUGS (3)
  1. AFINITOR [Suspect]
     Indication: SMALL CELL LUNG CANCER
     Dosage: 10 MG, UNK
     Dates: start: 20131010
  2. AFINITOR [Suspect]
     Indication: OFF LABEL USE
     Dosage: 7.5 MG, QD
     Route: 048
     Dates: start: 20131210, end: 20131210
  3. AFINITOR [Suspect]
     Indication: LUNG NEOPLASM MALIGNANT

REACTIONS (3)
  - Disease progression [Fatal]
  - Jaundice [Unknown]
  - Lymphadenopathy [Unknown]
